FAERS Safety Report 21567633 (Version 2)
Quarter: 2022Q4

REPORT INFORMATION
  Report Type: Spontaneous
  Country: JP (occurrence: JP)
  Receive Date: 20221108
  Receipt Date: 20221118
  Transmission Date: 20230113
  Serious: Yes (Other)
  Sender: FDA-Public Use
  Company Number: JP-GILEAD-2022-0603399

PATIENT
  Sex: Female

DRUGS (3)
  1. VEKLURY [Suspect]
     Active Substance: REMDESIVIR
     Indication: COVID-19
     Dosage: 2 VIALS
     Route: 041
     Dates: start: 20221025, end: 20221025
  2. VEKLURY [Suspect]
     Active Substance: REMDESIVIR
     Dosage: UNK
     Route: 041
     Dates: start: 20221026, end: 20221029
  3. VEKLURY [Suspect]
     Active Substance: REMDESIVIR
     Dosage: 1 VIAL
     Route: 041
     Dates: start: 20221031

REACTIONS (1)
  - COVID-19 pneumonia [Recovered/Resolved]
